FAERS Safety Report 21127571 (Version 1)
Quarter: 2022Q3

REPORT INFORMATION
  Report Type: Spontaneous
  Country: CN (occurrence: CN)
  Receive Date: 20220725
  Receipt Date: 20220725
  Transmission Date: 20221027
  Serious: Yes (Other)
  Sender: FDA-Public Use
  Company Number: CN-BAYER-2022A103914

PATIENT
  Age: 75 Year
  Sex: Male
  Weight: 75 kg

DRUGS (3)
  1. ULTRAVIST [Suspect]
     Active Substance: IOPROMIDE
     Indication: Imaging procedure
     Dosage: 100 ML, ONCE
     Route: 041
     Dates: start: 20220718, end: 20220718
  2. ULTRAVIST [Suspect]
     Active Substance: IOPROMIDE
     Indication: Cerebral artery occlusion
  3. ULTRAVIST [Suspect]
     Active Substance: IOPROMIDE
     Indication: Cerebral infarction

REACTIONS (5)
  - Contrast encephalopathy [Recovering/Resolving]
  - Speech disorder [Recovering/Resolving]
  - Movement disorder [Recovering/Resolving]
  - Product prescribing issue [None]
  - Incorrect drug administration rate [None]

NARRATIVE: CASE EVENT DATE: 20220718
